FAERS Safety Report 5600121-1 (Version None)
Quarter: 2008Q1

REPORT INFORMATION
  Report Type: 
  Country: None (occurrence: None)
  Receive Date: 20080123
  Receipt Date: 20080114
  Transmission Date: 20080703
  Serious: Yes (Hospitalization)
  Sender: FDA-Public Use
  Company Number: B0502713A

PATIENT
  Age: 84 Year
  Sex: Female

DRUGS (6)
  1. ARIXTRA [Suspect]
     Route: 058
     Dates: start: 20071107, end: 20071112
  2. PREVISCAN (FLUINDIONE) [Suspect]
     Route: 048
     Dates: start: 20071107, end: 20071113
  3. SERESTA 10 MG [Concomitant]
     Route: 048
  4. INDAPAMIDE [Concomitant]
     Dates: end: 20071113
  5. MEDIATENSYL [Concomitant]
     Route: 048
  6. ZESTRIL [Concomitant]

REACTIONS (8)
  - ANAEMIA [None]
  - ASTHENIA [None]
  - COGNITIVE DISORDER [None]
  - CONFUSIONAL STATE [None]
  - DISORIENTATION [None]
  - HAEMATOMA [None]
  - PALLOR [None]
  - RENAL FAILURE [None]
